FAERS Safety Report 10309024 (Version 3)
Quarter: 2015Q1

REPORT INFORMATION
  Report Type: Spontaneous
  Country: US (occurrence: US)
  Receive Date: 20140716
  Receipt Date: 20150105
  Transmission Date: 20150720
  Serious: Yes (Life-Threatening, Hospitalization, Disabling, Other)
  Sender: FDA-Public Use
  Company Number: US-ELI_LILLY_AND_COMPANY-US201407002868

PATIENT
  Age: 44 Year
  Sex: Male
  Weight: 105.67 kg

DRUGS (4)
  1. ADVAIR HFA [Concomitant]
     Active Substance: FLUTICASONE PROPIONATE\SALMETEROL XINAFOATE
     Dosage: UNK, BID
     Route: 065
  2. ALBUTEROL                          /00139501/ [Concomitant]
     Active Substance: ALBUTEROL
     Indication: WHEEZING
     Dosage: UNK, PRN
     Route: 055
  3. AXIRON [Suspect]
     Active Substance: TESTOSTERONE
     Indication: BLOOD TESTOSTERONE DECREASED
     Dosage: UNK UNK, QD
     Route: 065
     Dates: start: 201107, end: 20120731
  4. TESTOSTERONE. [Suspect]
     Active Substance: TESTOSTERONE
     Indication: BLOOD TESTOSTERONE DECREASED
     Dosage: 20 MG, WEEKLY (1/W)
     Route: 065
     Dates: start: 200908

REACTIONS (5)
  - Venous thrombosis [Unknown]
  - Portal vein thrombosis [Unknown]
  - Thrombosis [Unknown]
  - Antiphospholipid syndrome [Unknown]
  - Transaminases increased [Unknown]

NARRATIVE: CASE EVENT DATE: 201207
